FAERS Safety Report 23390338 (Version 1)
Quarter: 2024Q1

REPORT INFORMATION
  Report Type: Spontaneous
  Country: DE (occurrence: DE)
  Receive Date: 20240111
  Receipt Date: 20240111
  Transmission Date: 20240410
  Serious: Yes (Hospitalization)
  Sender: FDA-Public Use
  Company Number: DE-AMK-268626

PATIENT
  Age: 89 Year
  Sex: Male
  Weight: 78 kg

DRUGS (10)
  1. CIPROFLOXACIN [Suspect]
     Active Substance: CIPROFLOXACIN
     Indication: Urinary tract infection
     Dosage: APPROXIMATELY JUNE 26, 2023 FOR 5-7 DAYS
     Route: 048
     Dates: start: 202306
  2. ATORVASTATIN [Concomitant]
     Active Substance: ATORVASTATIN
     Indication: Product used for unknown indication
     Dosage: LONG-TERM MEDICATION
     Route: 065
  3. TAMSULOSIN [Concomitant]
     Active Substance: TAMSULOSIN
     Indication: Product used for unknown indication
     Dosage: LONG-TERM MEDICATION
     Route: 065
  4. TORSEMIDE [Concomitant]
     Active Substance: TORSEMIDE
     Indication: Product used for unknown indication
     Dosage: LONG-TERM MEDICATION
     Route: 065
  5. ALBUTEROL [Concomitant]
     Active Substance: ALBUTEROL
     Indication: Product used for unknown indication
     Dosage: LONG-TERM MEDICATION
     Route: 065
  6. VALSARTAN [Concomitant]
     Active Substance: VALSARTAN
     Indication: Product used for unknown indication
     Dosage: LONG-TERM MEDICATION
     Route: 065
  7. CHOLECALCIFEROL [Concomitant]
     Active Substance: CHOLECALCIFEROL
     Indication: Vitamin D deficiency
     Dosage: LONG-TERM MEDICATION
     Route: 065
  8. DIHYDRALAZINE [Concomitant]
     Active Substance: DIHYDRALAZINE
     Indication: Product used for unknown indication
     Dosage: LONG-TERM MEDICATION
     Route: 065
  9. ASPIRIN [Concomitant]
     Active Substance: ASPIRIN
     Indication: Product used for unknown indication
     Dosage: LONG-TERM MEDICATION
     Route: 065
  10. OLODATEROL HYDROCHLORIDE\TIOTROPIUM BROMIDE MONOHYDRATE [Concomitant]
     Active Substance: OLODATEROL HYDROCHLORIDE\TIOTROPIUM BROMIDE MONOHYDRATE
     Indication: Product used for unknown indication
     Dosage: LONG-TERM MEDICATION
     Route: 065

REACTIONS (5)
  - Tendon pain [Recovered/Resolved]
  - Feeling hot [Recovered/Resolved]
  - Immobilisation bandage [Recovered/Resolved]
  - Tendonitis [Recovered/Resolved]
  - Erythema [Recovered/Resolved]

NARRATIVE: CASE EVENT DATE: 20230714
